FAERS Safety Report 4524404-1 (Version None)
Quarter: 2004Q4

REPORT INFORMATION
  Report Type: 
  Country: None (occurrence: None)
  Receive Date: 20041123
  Receipt Date: 20040401
  Transmission Date: 20050328
  Serious: Yes (Hospitalization)
  Sender: FDA-Public Use
  Company Number: US-JNJFOC-20040306169

PATIENT
  Age: 58 Year
  Sex: Female
  Weight: 72.1219 kg

DRUGS (6)
  1. PROPULSID [Suspect]
     Indication: DRUG USE FOR UNKNOWN INDICATION
     Dosage: 20 MG, 3 IN 1 DAY
     Dates: start: 19981001
  2. FUROSEMIDE [Concomitant]
  3. K-DUR 10 [Concomitant]
  4. PRILOSEC [Concomitant]
  5. PREMARIN [Concomitant]
  6. XANAX [Concomitant]

REACTIONS (1)
  - CHEST PAIN [None]
